FAERS Safety Report 4444206-4 (Version None)
Quarter: 2004Q3

REPORT INFORMATION
  Report Type: 
  Country: None (occurrence: None)
  Receive Date: 20040902
  Receipt Date: 20040823
  Transmission Date: 20050211
  Serious: Yes (Death, Life-Threatening, Other)
  Sender: FDA-Public Use
  Company Number: USA-2003-0010205

PATIENT
  Age: 30 Year
  Sex: Male
  Weight: 111.1 kg

DRUGS (4)
  1. OXYCODONE HCL [Suspect]
     Dosage: UNK MG, UNK, UNKNOWN
     Route: 065
  2. METHADONE HCL [Suspect]
     Dosage: UNK, UNK, UNK
     Route: 065
  3. CODEINE (CODEINE) [Suspect]
     Dosage: UNK, UNK, UNK
     Route: 065
  4. COCAINE (COCAINE) [Suspect]
     Dosage: UNK, UNK, UNK
     Route: 065

REACTIONS (17)
  - ACCIDENTAL OVERDOSE [None]
  - ASPIRATION [None]
  - AUTOIMMUNE THYROIDITIS [None]
  - CARDIAC ARREST [None]
  - COMA [None]
  - CORONARY ARTERY ATHEROSCLEROSIS [None]
  - CYANOSIS [None]
  - DRUG TOXICITY [None]
  - HYPOTENSION [None]
  - HYPOVENTILATION [None]
  - JAW DISORDER [None]
  - MULTIPLE DRUG OVERDOSE [None]
  - MYDRIASIS [None]
  - PNEUMONIA [None]
  - PORTAL TRIADITIS [None]
  - PUPIL FIXED [None]
  - TACHYCARDIA [None]
